FAERS Safety Report 9201223 (Version 3)
Quarter: 2013Q3

REPORT INFORMATION
  Report Type: Report from Study
  Country: US (occurrence: US)
  Receive Date: 20130401
  Receipt Date: 20130923
  Transmission Date: 20140515
  Serious: Yes (Death, Hospitalization, Other)
  Sender: FDA-Public Use
  Company Number: PHEH2013US007138

PATIENT
  Age: 65 Year
  Sex: 0
  Weight: 93 kg

DRUGS (5)
  1. AFINITOR [Suspect]
     Indication: RENAL CELL CARCINOMA
     Dosage: 7.5 MG, QD
     Route: 048
     Dates: start: 20120921, end: 20130307
  2. LOVENOX [Suspect]
  3. ASPIRIN [Concomitant]
  4. DEXAMETHASONE [Concomitant]
  5. PANTOPRAZOLE [Concomitant]

REACTIONS (14)
  - Respiratory arrest [Fatal]
  - Metastatic renal cell carcinoma [Fatal]
  - Malignant neoplasm progression [Fatal]
  - Metastases to lung [Fatal]
  - Atrial fibrillation [Recovering/Resolving]
  - Palpitations [Unknown]
  - Tachycardia [Recovering/Resolving]
  - Blood glucose increased [Recovering/Resolving]
  - Haemorrhage [Recovering/Resolving]
  - Pneumonia [Recovering/Resolving]
  - Wheezing [Recovering/Resolving]
  - Cough [Recovering/Resolving]
  - Dyspnoea [Unknown]
  - Deep vein thrombosis [Unknown]
